FAERS Safety Report 24936993 (Version 2)
Quarter: 2025Q2

REPORT INFORMATION
  Report Type: Spontaneous
  Country: US (occurrence: US)
  Receive Date: 20250206
  Receipt Date: 20250508
  Transmission Date: 20250717
  Serious: No
  Sender: BLUEPRINT MEDICINES
  Company Number: US-Blueprint Medicines Corporation-2025-AER-00210

PATIENT
  Age: 54 Year
  Sex: Male

DRUGS (2)
  1. AYVAKIT [Suspect]
     Active Substance: AVAPRITINIB
     Indication: Gastrointestinal stromal tumour
     Route: 065
     Dates: start: 20230718
  2. AYVAKIT [Suspect]
     Active Substance: AVAPRITINIB
     Route: 065
     Dates: start: 20230718

REACTIONS (11)
  - Hypoacusis [Unknown]
  - Tinnitus [Unknown]
  - Balance disorder [Unknown]
  - Head discomfort [Recovered/Resolved]
  - Brain fog [Unknown]
  - Lacrimation increased [Unknown]
  - Feeling abnormal [Unknown]
  - Periorbital swelling [Not Recovered/Not Resolved]
  - Dysphonia [Unknown]
  - Hair colour changes [Unknown]
  - Poikilocytosis [Unknown]
